FAERS Safety Report 5966682-8 (Version None)
Quarter: 2008Q4

REPORT INFORMATION
  Report Type: 
  Country: None (occurrence: None)
  Receive Date: 20081125
  Receipt Date: 20080924
  Transmission Date: 20090506
  Serious: No
  Sender: FDA-Public Use
  Company Number: US-AMGEN-KDL309694

PATIENT
  Sex: Male

DRUGS (1)
  1. ENBREL [Suspect]
     Indication: RHEUMATOID ARTHRITIS
     Route: 058
     Dates: start: 20050501

REACTIONS (9)
  - DYSPNOEA [None]
  - EATING DISORDER [None]
  - HEPATITIS A [None]
  - HEPATITIS B [None]
  - INJECTION SITE HAEMATOMA [None]
  - LETHARGY [None]
  - MUSCULAR WEAKNESS [None]
  - NERVE COMPRESSION [None]
  - WEIGHT DECREASED [None]
